FAERS Safety Report 8830432 (Version 1)
Quarter: 2012Q4

REPORT INFORMATION
  Report Type: 
  Country: PT (occurrence: PT)
  Receive Date: 20121009
  Receipt Date: 20121009
  Transmission Date: 20130627
  Serious: Yes (Other)
  Sender: FDA-Public Use
  Company Number: PHHY2012PT075497

PATIENT
  Age: 70 Year
  Sex: Male
  Weight: 90 kg

DRUGS (9)
  1. TAMSULOSIN [Suspect]
     Indication: URINE OUTPUT DECREASED
     Dosage: 0.4 mg, QD
     Route: 048
     Dates: start: 201107, end: 20120722
  2. RAMIPRIL [Concomitant]
     Indication: HYPERTENSION
     Dosage: 5 mg, QD
     Route: 048
  3. RAMIPRIL [Concomitant]
     Indication: DIABETES MELLITUS
  4. METFORMIN [Concomitant]
     Indication: DIABETES MELLITUS
     Dosage: 1000 mg, TID
     Route: 048
  5. SIMVASTATIN [Concomitant]
     Indication: HYPERCHOLESTEROLAEMIA
     Dosage: 20 mg, QD
     Route: 048
  6. GLICLAZIDE [Concomitant]
     Indication: DIABETES MELLITUS
     Dosage: 30 mg, BID
     Route: 048
  7. TROMALYT [Concomitant]
     Indication: PROPHYLAXIS
     Dosage: 150 mg, QD
     Route: 048
  8. AMLODIPINE [Concomitant]
     Indication: HYPERTENSION
     Dosage: 5 mg, QD
     Route: 048
  9. LANTUS [Concomitant]
     Indication: DIABETES MELLITUS
     Dosage: 28 IU, QD
     Route: 058

REACTIONS (3)
  - Erectile dysfunction [Recovered/Resolved]
  - Dyspnoea [Recovered/Resolved]
  - Dizziness [Recovered/Resolved]
